FAERS Safety Report 6284513-6 (Version None)
Quarter: 2009Q3

REPORT INFORMATION
  Report Type: 
  Country: None (occurrence: None)
  Receive Date: 20090727
  Receipt Date: 20090720
  Transmission Date: 20100115
  Serious: Yes (Other)
  Sender: FDA-Public Use
  Company Number: US-BAYER-200920685GPV

PATIENT
  Age: 15 Year
  Sex: Female

DRUGS (4)
  1. LEVONORGESTREL AND ETHINYL ESTRADIOL [Suspect]
     Indication: MENORRHAGIA
     Dosage: LEVONORGESTREL 0.10 MG/ETHINYL ESTRADIOL 0.02 MG (ONE CYCLE)
     Route: 048
  2. MEDROXYPROGESTERONE [Suspect]
     Indication: MENORRHAGIA
     Dosage: TOTAL DAILY DOSE: 5 MG
     Route: 048
  3. DESOGESTREL AND ETHINYL ESTRADIOL [Suspect]
     Indication: MENORRHAGIA
     Dosage: DESOGESTREL 0.15 MG/ETHINYL ESTRADIOL 0.02 MG
     Route: 048
  4. VALPROIC ACID [Concomitant]
     Indication: CONVULSION

REACTIONS (1)
  - ANGIOMYOLIPOMA [None]
